FAERS Safety Report 4940366-7 (Version None)
Quarter: 2006Q1

REPORT INFORMATION
  Report Type: 
  Country: None (occurrence: None)
  Receive Date: 20060310
  Receipt Date: 20050706
  Transmission Date: 20060701
  Serious: Yes (Disabling)
  Sender: FDA-Public Use
  Company Number: US-MERCK-0507USA00926

PATIENT
  Age: 55 Year
  Sex: Male
  Weight: 66 kg

DRUGS (2)
  1. VIOXX [Suspect]
     Indication: MUSCULOSKELETAL PAIN
     Route: 048
     Dates: start: 20000201, end: 20010101
  2. VIOXX [Suspect]
     Indication: ARTHRALGIA
     Route: 048
     Dates: start: 20000201, end: 20010101

REACTIONS (3)
  - CARDIAC VALVE DISEASE [None]
  - INJURY [None]
  - OVERDOSE [None]
